FAERS Safety Report 5819267-8 (Version None)
Quarter: 2008Q3

REPORT INFORMATION
  Report Type: 
  Country: None (occurrence: None)
  Receive Date: 20080718
  Receipt Date: 20080703
  Transmission Date: 20090109
  Serious: Yes (Life-Threatening)
  Sender: FDA-Public Use
  Company Number: 8034531

PATIENT
  Age: 60 Year
  Sex: Female

DRUGS (1)
  1. KEPPRA [Suspect]
     Indication: PETIT MAL EPILEPSY
     Dosage: 500 MG 2/D PO
     Route: 048
     Dates: start: 20071107, end: 20071112

REACTIONS (1)
  - RENAL FAILURE ACUTE [None]
